FAERS Safety Report 5673104-3 (Version None)
Quarter: 2008Q1

REPORT INFORMATION
  Report Type: 
  Country: None (occurrence: None)
  Receive Date: 20080319
  Receipt Date: 20080312
  Transmission Date: 20080703
  Serious: Yes (Other)
  Sender: FDA-Public Use
  Company Number: US-ASTRAZENECA-2007UW27660

PATIENT
  Age: 61 Year
  Sex: Female
  Weight: 56.7 kg

DRUGS (17)
  1. ARIMIDEX [Suspect]
     Indication: BREAST CANCER
     Route: 048
     Dates: start: 20071201
  2. AVALIVE [Concomitant]
  3. CADUET [Concomitant]
  4. LISINOPRIL [Concomitant]
  5. CENTRUM SILVER [Concomitant]
  6. VITAMIN E [Concomitant]
  7. ASPIRIN [Concomitant]
  8. B-COMPLEX WITH FOLIC ACID [Concomitant]
  9. CALCIUM MAGNESIUM AND ZINC [Concomitant]
  10. VITAMIN D [Concomitant]
  11. TYLENOL (CAPLET) [Concomitant]
  12. IBUPROFEN [Concomitant]
  13. ADVIL [Concomitant]
  14. ZYRTEC [Concomitant]
  15. BENADRYL D [Concomitant]
  16. NASONEX [Concomitant]
  17. OMEGA 3 FISH OIL [Concomitant]

REACTIONS (3)
  - BACK PAIN [None]
  - HOT FLUSH [None]
  - HYPOTONIA [None]
